FAERS Safety Report 25417160 (Version 1)
Quarter: 2025Q2

REPORT INFORMATION
  Report Type: Spontaneous
  Country: US (occurrence: US)
  Receive Date: 20250610
  Receipt Date: 20250610
  Transmission Date: 20250717
  Serious: Yes (Other)
  Sender: NOVARTIS
  Company Number: US-002147023-NVSC2025US090570

PATIENT
  Age: 84 Year
  Sex: Male

DRUGS (2)
  1. CLOFAZIMINE [Suspect]
     Active Substance: CLOFAZIMINE
     Indication: Mycobacterium avium complex infection
     Dosage: 100 MG, QD
     Route: 065
     Dates: start: 20160523
  2. TIGECYCLINE [Suspect]
     Active Substance: TIGECYCLINE
     Indication: Product used for unknown indication
     Route: 065

REACTIONS (5)
  - Neuropathy peripheral [Unknown]
  - Plasma cell myeloma refractory [Unknown]
  - Mycobacterium avium complex infection [Unknown]
  - Disease progression [Unknown]
  - Drug tolerance [Unknown]
